FAERS Safety Report 23491349 (Version 1)
Quarter: 2024Q1

REPORT INFORMATION
  Report Type: Spontaneous
  Country: US (occurrence: None)
  Receive Date: 20240207
  Receipt Date: 20240207
  Transmission Date: 20240410
  Serious: No
  Sender: FDA-Public Use
  Company Number: US-ROCHE-3332346

PATIENT
  Sex: Male
  Weight: 44.946 kg

DRUGS (2)
  1. NUTROPIN AQ [Suspect]
     Active Substance: SOMATROPIN
     Indication: Growth hormone deficiency
     Route: 058
     Dates: start: 2020
  2. NUTROPIN AQ [Suspect]
     Active Substance: SOMATROPIN

REACTIONS (6)
  - Product dose omission issue [Unknown]
  - Device defective [Unknown]
  - Device breakage [Unknown]
  - Incorrect dose administered [Unknown]
  - Device difficult to use [Unknown]
  - No adverse event [Unknown]

NARRATIVE: CASE EVENT DATE: 20230412
